FAERS Safety Report 23263663 (Version 1)
Quarter: 2023Q4

REPORT INFORMATION
  Report Type: Spontaneous
  Country: IN (occurrence: IN)
  Receive Date: 20231205
  Receipt Date: 20231205
  Transmission Date: 20240110
  Serious: Yes (Hospitalization, Other)
  Sender: FDA-Public Use
  Company Number: IN-TAKEDA-2023TUS116181

PATIENT
  Age: 42 Year
  Sex: Male

DRUGS (1)
  1. ADCETRIS [Suspect]
     Active Substance: BRENTUXIMAB VEDOTIN
     Indication: Product used for unknown indication
     Dosage: UNK
     Route: 065

REACTIONS (5)
  - Paraplegia [Unknown]
  - Metastases to spine [Unknown]
  - Spinal cord compression [Unknown]
  - Lymphadenopathy [Unknown]
  - Pyrexia [Unknown]
